FAERS Safety Report 5601102-4 (Version None)
Quarter: 2008Q1

REPORT INFORMATION
  Report Type: 
  Country: None (occurrence: None)
  Receive Date: 20080124
  Receipt Date: 20080110
  Transmission Date: 20080703
  Serious: Yes (Hospitalization)
  Sender: FDA-Public Use
  Company Number: CZ-AMGEN-US257453

PATIENT
  Sex: Female

DRUGS (3)
  1. ENBREL [Suspect]
     Indication: ANKYLOSING SPONDYLITIS
     Route: 058
     Dates: start: 20070101, end: 20071015
  2. NYDRAZID [Suspect]
     Indication: TUBERCULOSIS
     Route: 065
  3. UNSPECIFIED ANTI-INFLAMMATORY AGENT [Concomitant]
     Route: 065

REACTIONS (5)
  - ACUTE HEPATIC FAILURE [None]
  - DRUG TOXICITY [None]
  - OFF LABEL USE [None]
  - PAIN [None]
  - TUBERCULOSIS [None]
